FAERS Safety Report 8094825-1 (Version None)
Quarter: 2012Q1

REPORT INFORMATION
  Report Type: 
  Country: None (occurrence: None)
  Receive Date: 20120129
  Receipt Date: 20111212
  Transmission Date: 20120608
  Serious: No
  Sender: FDA-Public Use
  Company Number: US-ABBOTT-11P-163-0882548-00

PATIENT
  Age: 40 Year
  Sex: Female

DRUGS (2)
  1. UNKNOWN TOPICAL MEDICATIONS [Concomitant]
     Indication: PSORIASIS
     Route: 061
  2. HUMIRA [Suspect]
     Indication: PSORIASIS
     Dates: start: 20110601, end: 20111205

REACTIONS (8)
  - EYE PAIN [None]
  - EYE DISCHARGE [None]
  - SINUSITIS [None]
  - COUGH [None]
  - SINUS CONGESTION [None]
  - HEADACHE [None]
  - CONJUNCTIVITIS INFECTIVE [None]
  - OCULAR HYPERAEMIA [None]
